FAERS Safety Report 9357307 (Version 1)
Quarter: 2013Q2

REPORT INFORMATION
  Report Type: Spontaneous
  Country: US (occurrence: None)
  Receive Date: 20130617
  Receipt Date: 20130617
  Transmission Date: 20140414
  Serious: Yes (Hospitalization)
  Sender: FDA-Public Use
  Company Number: UTC-033446

PATIENT
  Sex: 0

DRUGS (4)
  1. REMODULIN (1 MILLIGRAM/MILLILITERS, INJECTION FOR INFUSION) (TREPROSTINIL SODIUM) [Suspect]
     Indication: PULMONARY ARTERIAL HYPERTENSION
     Dosage: (0.032 UG/KG, 1 IN 1 MIN), INTRAVENOUS DRIP
     Route: 041
     Dates: start: 20121008
  2. REVATIO [Concomitant]
  3. LETAIRIS [Concomitant]
  4. WARFARIN [Concomitant]

REACTIONS (1)
  - Pancytopenia [None]
